FAERS Safety Report 16325404 (Version 4)
Quarter: 2020Q1

REPORT INFORMATION
  Report Type: Spontaneous
  Country: FR (occurrence: FR)
  Receive Date: 20190517
  Receipt Date: 20200219
  Transmission Date: 20200409
  Serious: Yes (Other)
  Sender: FDA-Public Use
  Company Number: FR-PURDUE PHARMA-GBR-2019-0066564

PATIENT
  Age: 54 Year
  Sex: Male

DRUGS (7)
  1. NON-PMN MORPHINE SULFATE [Suspect]
     Active Substance: MORPHINE SULFATE
     Indication: PRODUCT USED FOR UNKNOWN INDICATION
     Dosage: 50 MG, EVERY 15 DAYS
     Route: 042
  2. NON-PMN MORPHINE SULFATE [Suspect]
     Active Substance: MORPHINE SULFATE
     Dosage: 50 MG, EVERY 15 DAYS
     Route: 045
  3. NON-PMN MORPHINE SULFATE [Suspect]
     Active Substance: MORPHINE SULFATE
     Dosage: UNK
     Route: 051
  4. NON-PMN BUPRENORPHINE [Suspect]
     Active Substance: BUPRENORPHINE
     Indication: PRODUCT USED FOR UNKNOWN INDICATION
     Dosage: UNK
     Route: 051
  5. BROMAZEPAM [Suspect]
     Active Substance: BROMAZEPAM
     Indication: OFF LABEL USE
     Dosage: UNK, 8 TO 20 PILLS
     Route: 065
     Dates: start: 1981
  6. CLONAZEPAM. [Suspect]
     Active Substance: CLONAZEPAM
     Dosage: UNK
     Route: 065
  7. CLONAZEPAM. [Suspect]
     Active Substance: CLONAZEPAM
     Indication: OFF LABEL USE
     Dosage: UNK
     Route: 065

REACTIONS (5)
  - Intentional product use issue [Unknown]
  - Nasal septum deviation [Unknown]
  - Cluster headache [Not Recovered/Not Resolved]
  - Substance abuse [Unknown]
  - Facial bones fracture [Unknown]

NARRATIVE: CASE EVENT DATE: 1984
